FAERS Safety Report 6935051-6 (Version None)
Quarter: 2010Q3

REPORT INFORMATION
  Report Type: 
  Country: None (occurrence: None)
  Receive Date: 20100822
  Receipt Date: 20100810
  Transmission Date: 20110219
  Serious: Yes (Death, Hospitalization, Other)
  Sender: FDA-Public Use
  Company Number: PHHY2010US42363

PATIENT
  Sex: Male

DRUGS (5)
  1. EXJADE [Suspect]
     Indication: SICKLE CELL ANAEMIA
     Dosage: BID
     Route: 048
     Dates: start: 20070101
  2. EXJADE [Suspect]
     Indication: IRON OVERLOAD
  3. SULFONAMIDES [Concomitant]
  4. ACETAMINOPHEN [Concomitant]
  5. DESFERAL [Concomitant]

REACTIONS (13)
  - ASCITES [None]
  - CHROMATURIA [None]
  - DECREASED APPETITE [None]
  - FATIGUE [None]
  - HEPATIC FAILURE [None]
  - JAUNDICE [None]
  - LETHARGY [None]
  - MENTAL STATUS CHANGES [None]
  - OEDEMA [None]
  - RENAL FAILURE [None]
  - RENAL TRANSPLANT [None]
  - TREATMENT NONCOMPLIANCE [None]
  - URINE OUTPUT DECREASED [None]
